FAERS Safety Report 7320680-0 (Version None)
Quarter: 2011Q1

REPORT INFORMATION
  Report Type: 
  Country: None (occurrence: None)
  Receive Date: 20110223
  Receipt Date: 20110223
  Transmission Date: 20110831
  Serious: Yes (Other)
  Sender: FDA-Public Use
  Company Number: None

PATIENT
  Age: 45 Year
  Sex: Female
  Weight: 61.2356 kg

DRUGS (3)
  1. ZOFRAN [Suspect]
     Indication: NAUSEA
     Dosage: 1 DISOLVING TABLET 2-6 TIMES A DAY PO
     Route: 048
     Dates: start: 20101227, end: 20110106
  2. NUCYNTA [Suspect]
     Indication: PAIN
     Dosage: 1 TABLET 2-6 TIMES A DAY PO
     Route: 048
     Dates: start: 20101207, end: 20110106
  3. A-BART [Concomitant]

REACTIONS (4)
  - NAUSEA [None]
  - DRUG WITHDRAWAL SYNDROME [None]
  - GASTRIC PH DECREASED [None]
  - CRYING [None]
